FAERS Safety Report 23992441 (Version 2)
Quarter: 2024Q3

REPORT INFORMATION
  Report Type: Spontaneous
  Country: DK (occurrence: DK)
  Receive Date: 20240620
  Receipt Date: 20240821
  Transmission Date: 20241016
  Serious: Yes (Other)
  Sender: ROCHE
  Company Number: DK-002147023-NVSC2024DK122936

PATIENT
  Sex: Female

DRUGS (2)
  1. XOLAIR [Suspect]
     Active Substance: OMALIZUMAB
     Indication: Product used for unknown indication
     Dosage: 300 MG, Q3W SOLUTION FOR INJECTION IN PRE-FILLED SYRINGE
     Route: 065
     Dates: start: 20210317
  2. XOLAIR [Suspect]
     Active Substance: OMALIZUMAB
     Dosage: 150 MG, Q3W SOLUTION FOR INJECTION IN PRE-FILLED SYRINGE
     Route: 065

REACTIONS (2)
  - Thrombophlebitis [Unknown]
  - Off label use [Unknown]

NARRATIVE: CASE EVENT DATE: 20210317
